FAERS Safety Report 13973690 (Version 1)
Quarter: 2017Q3

REPORT INFORMATION
  Report Type: Spontaneous
  Country: US (occurrence: None)
  Receive Date: 20170914
  Receipt Date: 20170914
  Transmission Date: 20171128
  Serious: Yes (Disabling)
  Sender: FDA-Public Use
  Company Number: None

PATIENT
  Age: 27 Year
  Weight: 63.5 kg

DRUGS (1)
  1. RESTASIS [Suspect]
     Active Substance: CYCLOSPORINE
     Dates: start: 20160408

REACTIONS (6)
  - Loss of personal independence in daily activities [None]
  - Eye pruritus [None]
  - Optic nerve disorder [None]
  - Dry eye [None]
  - Meibomian gland dysfunction [None]
  - Visual impairment [None]
